FAERS Safety Report 9189535 (Version 1)
Quarter: 2013Q1

REPORT INFORMATION
  Report Type: Spontaneous
  Country: BE (occurrence: BE)
  Receive Date: 20130326
  Receipt Date: 20130326
  Transmission Date: 20140127
  Serious: Yes (Hospitalization)
  Sender: FDA-Public Use
  Company Number: BE-JNJFOC-20130107002

PATIENT
  Age: 24 Year
  Sex: Female

DRUGS (3)
  1. XEPLION [Suspect]
     Indication: PRODUCT USED FOR UNKNOWN INDICATION
     Dosage: IN TOTAL THREE INJECTION
     Route: 030
     Dates: start: 20120208
  2. LORMETAZEPAM [Concomitant]
     Indication: SLEEP DISORDER
     Dosage: 1 MG....1/2
     Route: 048
  3. LYSANXIA [Concomitant]
     Indication: ANXIETY
     Dosage: 5 DROPS IF NECESSARY
     Route: 048

REACTIONS (3)
  - Schizophrenia, paranoid type [Not Recovered/Not Resolved]
  - Palpitations [Unknown]
  - Chest pain [Unknown]
